FAERS Safety Report 7825105-4 (Version None)
Quarter: 2011Q4

REPORT INFORMATION
  Report Type: 
  Country: None (occurrence: None)
  Receive Date: 20111019
  Receipt Date: 20101207
  Transmission Date: 20120403
  Serious: No
  Sender: FDA-Public Use
  Company Number: US-BRISTOL-MYERS SQUIBB COMPANY-15336274

PATIENT
  Age: 63 Year
  Sex: Male
  Weight: 111 kg

DRUGS (4)
  1. ALEVE [Suspect]
  2. PRILOSEC [Concomitant]
  3. ASPIRIN [Concomitant]
  4. AVALIDE [Suspect]
     Dosage: STARTED AVALIDE 150MG ABOUT 3YRS AGO; AVALIDE TABS 300/12.5 MG

REACTIONS (1)
  - ADVERSE EVENT [None]
